FAERS Safety Report 5159309-9 (Version None)
Quarter: 2006Q4

REPORT INFORMATION
  Report Type: 
  Country: None (occurrence: None)
  Receive Date: 20061115
  Receipt Date: 20061103
  Transmission Date: 20070319
  Serious: Yes (Other)
  Sender: FDA-Public Use
  Company Number: THYM-11162

PATIENT
  Age: 39 Year
  Sex: Male

DRUGS (14)
  1. THYMOGLOBULIN [Suspect]
     Indication: RENAL TRANSPLANT
     Dosage: 125 MG QD IV
     Route: 042
     Dates: start: 20061102
  2. SOLU-MEDROL [Concomitant]
  3. BENADRYL [Concomitant]
  4. CELLCEPT [Concomitant]
  5. PROGRAF [Concomitant]
  6. LEVOFLOXACIN [Concomitant]
  7. VALCYTE [Concomitant]
  8. AMPICILLIN SODIUM [Concomitant]
  9. MEXILETINE HYDROCHLORIDE [Concomitant]
  10. SODIUM BICARBONATE [Concomitant]
  11. DAPSONE [Concomitant]
  12. COLACE [Concomitant]
  13. NIFEREX [Concomitant]
  14. PROTONIX [Concomitant]

REACTIONS (1)
  - BLOOD PRESSURE DECREASED [None]
